FAERS Safety Report 15046594 (Version 3)
Quarter: 2018Q4

REPORT INFORMATION
  Report Type: Spontaneous
  Country: US (occurrence: US)
  Receive Date: 20180621
  Receipt Date: 20181218
  Transmission Date: 20190204
  Serious: Yes (Disabling)
  Sender: FDA-Public Use
  Company Number: US-OTSUKA-2018_016420

PATIENT
  Sex: Male

DRUGS (7)
  1. VIAGRA [Concomitant]
     Active Substance: SILDENAFIL CITRATE
     Indication: PRODUCT USED FOR UNKNOWN INDICATION
     Dosage: 0.5 TABLET TO 1 TABLET AT LEAST 1/2 HOUR BEFORE NEEDED
     Route: 048
  2. SONATA [Concomitant]
     Active Substance: ZALEPLON
     Indication: SLEEP DISORDER
     Dosage: 1 DF, QD (AT HS)
     Route: 048
  3. ABILIFY [Suspect]
     Active Substance: ARIPIPRAZOLE
     Indication: MAJOR DEPRESSION
     Dosage: 5 MG, QD
     Route: 065
     Dates: end: 201702
  4. LEXAPRO [Concomitant]
     Active Substance: ESCITALOPRAM OXALATE
     Indication: PRODUCT USED FOR UNKNOWN INDICATION
     Dosage: 1 DF, QD
     Route: 048
  5. ABILIFY [Suspect]
     Active Substance: ARIPIPRAZOLE
     Indication: ATTENTION DEFICIT/HYPERACTIVITY DISORDER
  6. ARIPIPRAZOLE. [Concomitant]
     Active Substance: ARIPIPRAZOLE
     Indication: PRODUCT USED FOR UNKNOWN INDICATION
     Dosage: UNK
     Route: 065
     Dates: end: 20170203
  7. ADDERALL [Concomitant]
     Active Substance: AMPHETAMINE ASPARTATE\AMPHETAMINE SULFATE\DEXTROAMPHETAMINE SACCHARATE\DEXTROAMPHETAMINE SULFATE
     Indication: PRODUCT USED FOR UNKNOWN INDICATION
     Dosage: 1 DF, QD (1 EXTENDED RELEASE CAPSULE DAILY)
     Route: 048

REACTIONS (23)
  - Injury [Unknown]
  - Mental impairment [Unknown]
  - Obsessive-compulsive disorder [Recovered/Resolved]
  - Compulsive shopping [Recovered/Resolved]
  - Insurance issue [Unknown]
  - Anhedonia [Unknown]
  - Homeless [Unknown]
  - Disability [Unknown]
  - Emotional distress [Unknown]
  - Anxiety [Unknown]
  - Bankruptcy [Unknown]
  - Treatment noncompliance [Unknown]
  - Loss of employment [Unknown]
  - Economic problem [Unknown]
  - Legal problem [Unknown]
  - Product use in unapproved indication [Unknown]
  - Compulsive sexual behaviour [Recovered/Resolved]
  - Weight increased [Unknown]
  - Pain [Unknown]
  - Social problem [Unknown]
  - Fear [Unknown]
  - Sexual dysfunction [Recovered/Resolved]
  - Gambling disorder [Recovered/Resolved]

NARRATIVE: CASE EVENT DATE: 201102
